FAERS Safety Report 9010718 (Version 1)
Quarter: 2013Q1

REPORT INFORMATION
  Report Type: Spontaneous
  Country: CH (occurrence: CH)
  Receive Date: 20130109
  Receipt Date: 20130109
  Transmission Date: 20140127
  Serious: Yes (Death)
  Sender: FDA-Public Use
  Company Number: CH-SANOFI-AVENTIS-2012SA095618

PATIENT
  Age: 87 Year
  Sex: Female

DRUGS (4)
  1. LASIX [Suspect]
     Indication: PRODUCT USED FOR UNKNOWN INDICATION
     Route: 048
     Dates: start: 20121115, end: 20121119
  2. ALLOPURINOL [Suspect]
     Indication: PRODUCT USED FOR UNKNOWN INDICATION
     Route: 048
     Dates: end: 20121119
  3. HYDROCHLOROTHIAZIDE/OLMESARTAN MEDOXOMIL [Suspect]
     Indication: PRODUCT USED FOR UNKNOWN INDICATION
     Route: 048
     Dates: end: 20121119
  4. LERCADIP [Concomitant]
     Route: 048
     Dates: end: 20121119

REACTIONS (4)
  - Renal failure acute [Fatal]
  - Dyspnoea [Fatal]
  - Oedema peripheral [Fatal]
  - Anuria [Fatal]
